FAERS Safety Report 10571501 (Version 3)
Quarter: 2015Q1

REPORT INFORMATION
  Report Type: Spontaneous
  Country: US (occurrence: US)
  Receive Date: 20141107
  Receipt Date: 20150212
  Transmission Date: 20150720
  Serious: No
  Sender: FDA-Public Use
  Company Number: US-GLAXOSMITHKLINE-A1085909A

PATIENT

DRUGS (11)
  1. FLUOROMETHOLONE. [Concomitant]
     Active Substance: FLUOROMETHOLONE
  2. CELEXA [Concomitant]
     Active Substance: CITALOPRAM HYDROBROMIDE
  3. VENTOLIN [Suspect]
     Active Substance: ALBUTEROL SULFATE
     Indication: CHRONIC OBSTRUCTIVE PULMONARY DISEASE
     Route: 055
     Dates: start: 201403
  4. ZANTAC [Concomitant]
     Active Substance: RANITIDINE HYDROCHLORIDE
  5. ASPIRIN LOW DOSE [Concomitant]
     Active Substance: ASPIRIN
  6. MULTIVITAMIN [Concomitant]
     Active Substance: VITAMINS
  7. VITAMIN D3 [Concomitant]
     Active Substance: CHOLECALCIFEROL
  8. SPIRIVA [Concomitant]
     Active Substance: TIOTROPIUM BROMIDE MONOHYDRATE
  9. SIMVASTATIN. [Concomitant]
     Active Substance: SIMVASTATIN
  10. PRILOSEC [Concomitant]
     Active Substance: OMEPRAZOLE MAGNESIUM
  11. DOMPERIDONE [Concomitant]
     Active Substance: DOMPERIDONE

REACTIONS (3)
  - Drug ineffective [Unknown]
  - Dyspnoea [Recovered/Resolved]
  - Product quality issue [Unknown]

NARRATIVE: CASE EVENT DATE: 20140817
